FAERS Safety Report 7001998-8 (Version None)
Quarter: 2010Q3

REPORT INFORMATION
  Report Type: 
  Country: None (occurrence: None)
  Receive Date: 20100920
  Receipt Date: 20100910
  Transmission Date: 20110219
  Serious: Yes (Death)
  Sender: FDA-Public Use
  Company Number: B0657873A

PATIENT
  Sex: Female

DRUGS (9)
  1. PAXIL [Suspect]
     Indication: DEPRESSION
     Dosage: 10MG PER DAY
     Route: 048
     Dates: start: 20100517, end: 20100527
  2. METILDIGOXIN [Concomitant]
     Indication: CARDIAC FAILURE
     Dosage: .05MG PER DAY
     Route: 048
     Dates: start: 20100301, end: 20100612
  3. ARTIST [Concomitant]
     Indication: CARDIAC FAILURE
     Dosage: 5MG PER DAY
     Route: 048
     Dates: start: 20100301, end: 20100612
  4. ZYLORIC [Concomitant]
     Indication: CARDIAC FAILURE
     Dosage: 100MG PER DAY
     Route: 048
     Dates: start: 20100301, end: 20100612
  5. FUROSEMIDE [Concomitant]
     Indication: CARDIAC FAILURE
     Dosage: 80MG PER DAY
     Route: 048
     Dates: start: 20100301, end: 20100612
  6. WARFARIN SODIUM [Concomitant]
     Indication: CARDIAC FAILURE
     Dosage: 1.5MG PER DAY
     Route: 048
     Dates: start: 20100301, end: 20100612
  7. ALDACTONE [Concomitant]
     Indication: CARDIAC FAILURE
     Dosage: 25MG PER DAY
     Route: 048
     Dates: start: 20100301, end: 20100612
  8. MEXITIL [Concomitant]
     Indication: ARRHYTHMIA
     Dosage: 200MG PER DAY
     Route: 048
     Dates: start: 20100301, end: 20100612
  9. MAGMITT [Concomitant]
     Indication: CONSTIPATION
     Dosage: 1980MG PER DAY
     Route: 048
     Dates: start: 20100426, end: 20100612

REACTIONS (5)
  - CARDIAC FAILURE [None]
  - HYPONATRAEMIA [None]
  - OEDEMA [None]
  - OLIGURIA [None]
  - WEIGHT INCREASED [None]
